FAERS Safety Report 11941059 (Version 1)
Quarter: 2016Q1

REPORT INFORMATION
  Report Type: Spontaneous
  Country: US (occurrence: US)
  Receive Date: 20160122
  Receipt Date: 20160122
  Transmission Date: 20160526
  Serious: Yes (Other)
  Sender: FDA-Public Use
  Company Number: US-NOVOPROD-467322

PATIENT
  Age: 8 Year
  Sex: Male
  Weight: 69.9 kg

DRUGS (2)
  1. NOVOSEVEN RT [Suspect]
     Active Substance: COAGULATION FACTOR VIIA RECOMBINANT HUMAN
     Indication: HAEMOPHILIA B WITH ANTI FACTOR IX
     Dosage: 2 MG, UNK
     Route: 042
     Dates: start: 2011
  2. NOVOSEVEN RT [Suspect]
     Active Substance: COAGULATION FACTOR VIIA RECOMBINANT HUMAN
     Dosage: 5 MG, UNK
     Route: 042
     Dates: end: 201408

REACTIONS (3)
  - Thrombosis in device [Not Recovered/Not Resolved]
  - Venous thrombosis [Not Recovered/Not Resolved]
  - Catheter site infection [Unknown]

NARRATIVE: CASE EVENT DATE: 2012
